FAERS Safety Report 7442951-X (Version None)
Quarter: 2011Q2

REPORT INFORMATION
  Report Type: 
  Country: None (occurrence: None)
  Receive Date: 20110419
  Receipt Date: 20110404
  Transmission Date: 20111010
  Serious: Yes (Other)
  Sender: FDA-Public Use
  Company Number: 029366

PATIENT
  Sex: Female

DRUGS (3)
  1. KEPPRA [Suspect]
     Indication: CONVULSION
     Dosage: 1000 MG ORAL; 1500 MG ORAL; 1250 MG ORAL
     Route: 048
     Dates: start: 20070101
  2. KEPPRA [Suspect]
     Indication: NERVOUS SYSTEM DISORDER
     Dosage: 1000 MG ORAL; 1500 MG ORAL; 1250 MG ORAL
     Route: 048
     Dates: start: 20070101
  3. KEPPRA [Suspect]

REACTIONS (5)
  - WEIGHT INCREASED [None]
  - PRODUCT FORMULATION ISSUE [None]
  - DRUG INEFFECTIVE [None]
  - CONVULSION [None]
  - MENTAL DISORDER [None]
